FAERS Safety Report 17100029 (Version 1)
Quarter: 2019Q4

REPORT INFORMATION
  Report Type: Report from Study
  Country: FR (occurrence: FR)
  Receive Date: 20191202
  Receipt Date: 20191202
  Transmission Date: 20200122
  Serious: Yes (Death)
  Sender: FDA-Public Use
  Company Number: FR-MYLANLABS-2019M1117844

PATIENT
  Age: 87 Year

DRUGS (2)
  1. FONDAPARINUX [Suspect]
     Active Substance: FONDAPARINUX
     Indication: THROMBOSIS PROPHYLAXIS
     Dosage: FOR THE FIRST 7-10 DAYS
     Route: 058
  2. FONDAPARINUX [Suspect]
     Active Substance: FONDAPARINUX
     Dosage: FOR 3 WEEKS
     Route: 058

REACTIONS (2)
  - Shock haemorrhagic [Fatal]
  - Abdominal wall haematoma [Fatal]
